FAERS Safety Report 7087058-9 (Version None)
Quarter: 2010Q4

REPORT INFORMATION
  Report Type: 
  Country: None (occurrence: None)
  Receive Date: 20101106
  Receipt Date: 20101025
  Transmission Date: 20110411
  Serious: No
  Sender: FDA-Public Use
  Company Number: US-WYE-H18361210

PATIENT
  Sex: Male
  Weight: 31.78 kg

DRUGS (4)
  1. PROTONIX [Suspect]
     Indication: GASTROOESOPHAGEAL REFLUX DISEASE
     Dates: start: 20050101, end: 20100101
  2. PROTONIX [Suspect]
     Dates: start: 20101023
  3. GABAPENTIN [Suspect]
  4. DOXAZOSIN MESYLATE [Concomitant]

REACTIONS (3)
  - CONDITION AGGRAVATED [None]
  - NEUROPATHY PERIPHERAL [None]
  - VITAMIN B COMPLEX DEFICIENCY [None]
